FAERS Safety Report 7429552-4 (Version None)
Quarter: 2011Q2

REPORT INFORMATION
  Report Type: 
  Country: None (occurrence: None)
  Receive Date: 20110421
  Receipt Date: 20110415
  Transmission Date: 20111010
  Serious: Yes (Hospitalization)
  Sender: FDA-Public Use
  Company Number: A0905169A

PATIENT
  Age: 60 Year
  Sex: Female
  Weight: 97.3 kg

DRUGS (9)
  1. AVANDIA [Suspect]
     Dosage: 4MG PER DAY
     Route: 048
     Dates: start: 20030821, end: 20041029
  2. GLUCOTROL XL [Concomitant]
  3. CELEBREX [Concomitant]
  4. COVERA-HS [Concomitant]
  5. PAXIL [Concomitant]
  6. PRANDIN [Concomitant]
  7. GLUCOPHAGE [Concomitant]
  8. ATENOLOL [Concomitant]
  9. TRICOR [Concomitant]

REACTIONS (3)
  - CAROTID ARTERY STENOSIS [None]
  - ARTERIOSCLEROSIS [None]
  - CEREBROVASCULAR ACCIDENT [None]
